FAERS Safety Report 7503875-2 (Version None)
Quarter: 2011Q2

REPORT INFORMATION
  Report Type: 
  Country: None (occurrence: None)
  Receive Date: 20110401
  Receipt Date: 20100729
  Transmission Date: 20111010
  Serious: Yes (Hospitalization)
  Sender: FDA-Public Use
  Company Number: 243077USA

PATIENT
  Age: 59 Year
  Sex: Female
  Weight: 64.8644 kg

DRUGS (9)
  1. IBUPROFEN [Suspect]
     Indication: PAIN
  2. ALPRAZOLAM [Suspect]
     Indication: ANXIETY
  3. ALPRAZOLAM [Concomitant]
  4. LORAZEPAM [Concomitant]
  5. TAMOXIFEN CITRATE [Suspect]
     Indication: LUNG NEOPLASM MALIGNANT
     Dosage: (10 MG)
     Dates: start: 20100401, end: 20100101
  6. MEGESTROL ACETATE [Suspect]
     Indication: BLOOD OESTROGEN
     Dosage: 40 MG (40 MG, 1 IN 1 D), ORAL
     Route: 048
     Dates: start: 20100401, end: 20100101
  7. CARBOPLATIN [Suspect]
  8. PACLITAXEL [Suspect]
  9. UNKNOWN INHALERS [Concomitant]

REACTIONS (13)
  - FEELING HOT [None]
  - BLOOD PRESSURE INCREASED [None]
  - ARTHRITIS [None]
  - MENOPAUSAL SYMPTOMS [None]
  - PNEUMONITIS [None]
  - SOMNOLENCE [None]
  - DRUG INEFFECTIVE [None]
  - HOT FLUSH [None]
  - BACK PAIN [None]
  - HYPOACUSIS [None]
  - HAEMORRHOIDS [None]
  - NAIL DISORDER [None]
  - FEELING COLD [None]
